FAERS Safety Report 17688883 (Version 1)
Quarter: 2020Q2

REPORT INFORMATION
  Report Type: Spontaneous
  Country: CA (occurrence: CA)
  Receive Date: 20200421
  Receipt Date: 20200421
  Transmission Date: 20200714
  Serious: Yes (Other)
  Sender: FDA-Public Use
  Company Number: NVSC2020CA104886

PATIENT
  Age: 48 Year
  Sex: Female

DRUGS (3)
  1. SUTENT [Suspect]
     Active Substance: SUNITINIB MALATE
     Indication: PRODUCT USED FOR UNKNOWN INDICATION
     Dosage: UNK
     Route: 065
  2. SANDOSTATIN LAR DEPOT [Suspect]
     Active Substance: OCTREOTIDE ACETATE
     Indication: MEDULLARY THYROID CANCER
     Dosage: 20 MG
     Route: 042
  3. SANDOSTATIN LAR DEPOT [Suspect]
     Active Substance: OCTREOTIDE ACETATE
     Indication: DIARRHOEA
     Dosage: 30 MG
     Route: 042

REACTIONS (8)
  - Wound [Unknown]
  - Carcinoid tumour [Unknown]
  - Second primary malignancy [Unknown]
  - Body temperature decreased [Unknown]
  - Wound complication [Unknown]
  - Blood pressure increased [Unknown]
  - Constipation [Unknown]
  - Blood pressure systolic increased [Unknown]
